FAERS Safety Report 25604144 (Version 1)
Quarter: 2025Q3

REPORT INFORMATION
  Report Type: Spontaneous
  Country: ZA (occurrence: ZA)
  Receive Date: 20250725
  Receipt Date: 20250725
  Transmission Date: 20251021
  Serious: Yes (Other)
  Sender: CIPLA
  Company Number: ZA-CIPLA LTD.-2025ZA08883

PATIENT

DRUGS (9)
  1. DOLUTEGRAVIR [Suspect]
     Active Substance: DOLUTEGRAVIR
     Indication: HIV infection
     Dosage: 50 MILLIGRAM, BID
     Route: 065
     Dates: start: 20220615
  2. DOLUTEGRAVIR [Suspect]
     Active Substance: DOLUTEGRAVIR
     Dosage: 50 MILLIGRAM, QD
     Route: 065
     Dates: start: 202209
  3. LAMIVUDINE [Suspect]
     Active Substance: LAMIVUDINE
     Indication: HIV infection
     Route: 065
     Dates: start: 20220615
  4. ABACAVIR [Suspect]
     Active Substance: ABACAVIR
     Indication: HIV infection
     Route: 065
     Dates: start: 20220615
  5. ISONIAZID\RIFAMPIN [Concomitant]
     Active Substance: ISONIAZID\RIFAMPIN
     Indication: Lymph node tuberculosis
     Route: 065
     Dates: start: 20221014, end: 20230309
  6. RHZ [Concomitant]
     Indication: Lymph node tuberculosis
     Route: 065
     Dates: start: 20220818, end: 20221013
  7. PYRIDOXINE [Concomitant]
     Active Substance: PYRIDOXINE
     Indication: Product used for unknown indication
     Route: 065
  8. MULTI VITAMIN [ASCORBIC ACID;FOLIC ACID;NICOTINIC ACID;PYRIDOXINE HYDR [Concomitant]
     Indication: Product used for unknown indication
     Route: 065
  9. PREDNISONE [Concomitant]
     Active Substance: PREDNISONE
     Indication: Product used for unknown indication
     Route: 065

REACTIONS (1)
  - Lower respiratory tract infection [Recovered/Resolved]

NARRATIVE: CASE EVENT DATE: 20230518
